FAERS Safety Report 13467180 (Version 3)
Quarter: 2017Q3

REPORT INFORMATION
  Report Type: Spontaneous
  Country: GB (occurrence: GB)
  Receive Date: 20170421
  Receipt Date: 20170719
  Transmission Date: 20171127
  Serious: Yes (Hospitalization, Other)
  Sender: FDA-Public Use
  Company Number: GB-BAYER-2017-076593

PATIENT
  Age: 68 Year
  Sex: Female

DRUGS (17)
  1. ACETYLSALICYLIC ACID (} 100 MG) [Suspect]
     Active Substance: ASPIRIN
     Indication: PRODUCT USED FOR UNKNOWN INDICATION
     Route: 048
  2. LORATADINE. [Suspect]
     Active Substance: LORATADINE
     Route: 048
  3. AMLODIPINE [Suspect]
     Active Substance: AMLODIPINE BESYLATE
  4. REPLAGAL [Suspect]
     Active Substance: AGALSIDASE ALFA
  5. ACETYLSALICYLIC ACID (} 100 MG) [Suspect]
     Active Substance: ASPIRIN
     Indication: PRODUCT USED FOR UNKNOWN INDICATION
     Route: 048
  6. OMEPRAZOLE. [Suspect]
     Active Substance: OMEPRAZOLE
  7. DOCUSATE SODIUM. [Suspect]
     Active Substance: DOCUSATE SODIUM
  8. EZETROL [Suspect]
     Active Substance: EZETIMIBE
     Route: 048
  9. CITALOPRAM [Suspect]
     Active Substance: CITALOPRAM HYDROBROMIDE
  10. LANTHANUM CARBONATE. [Suspect]
     Active Substance: LANTHANUM CARBONATE
  11. ATORVASTATIN [Suspect]
     Active Substance: ATORVASTATIN
  12. ACETYLSALICYLIC ACID (} 100 MG) [Suspect]
     Active Substance: ASPIRIN
     Indication: PRODUCT USED FOR UNKNOWN INDICATION
     Route: 048
  13. ADCAL [Suspect]
     Active Substance: CALCIUM CARBONATE
  14. ALLOPURINOL. [Suspect]
     Active Substance: ALLOPURINOL
  15. EMLA [Suspect]
     Active Substance: LIDOCAINE\PRILOCAINE
  16. FUROSEMIDE. [Suspect]
     Active Substance: FUROSEMIDE
     Route: 048
  17. FUROSEMIDE. [Suspect]
     Active Substance: FUROSEMIDE
     Route: 048

REACTIONS (1)
  - Peritonitis [Recovering/Resolving]
